FAERS Safety Report 8687388 (Version 2)
Quarter: 2012Q4

REPORT INFORMATION
  Report Type: 
  Country: US (occurrence: US)
  Receive Date: 20120727
  Receipt Date: 20120904
  Transmission Date: 20130627
  Serious: Yes (Other)
  Sender: FDA-Public Use
  Company Number: US-JNJFOC-20120710217

PATIENT
  Age: 43 None
  Sex: Male
  Weight: 84.37 kg

DRUGS (5)
  1. PREZISTA [Suspect]
     Indication: HIV INFECTION
     Route: 048
     Dates: start: 20111223
  2. NORVIR [Concomitant]
     Indication: HIV INFECTION
     Route: 048
  3. TRUVADA [Concomitant]
     Indication: HIV INFECTION
     Route: 048
  4. ALBUTEROL SULPHATE [Concomitant]
     Indication: ASTHMA
     Route: 065
     Dates: start: 2010
  5. TRAZODONE [Concomitant]
     Indication: HYPERSOMNIA
     Route: 048
     Dates: start: 2009

REACTIONS (4)
  - Weight increased [Recovering/Resolving]
  - Pollakiuria [Not Recovered/Not Resolved]
  - Urine output decreased [Not Recovered/Not Resolved]
  - Fat tissue increased [None]
